FAERS Safety Report 10167205 (Version 1)
Quarter: 2014Q2

REPORT INFORMATION
  Report Type: Spontaneous
  Country: US (occurrence: US)
  Receive Date: 20140512
  Receipt Date: 20140512
  Transmission Date: 20141212
  Serious: No
  Sender: FDA-Public Use
  Company Number: US-PFIZER INC-2014129460

PATIENT
  Age: 46 Year
  Sex: Female
  Weight: 57.1 kg

DRUGS (4)
  1. LYRICA [Suspect]
     Indication: NEURALGIA
     Dosage: 50 MG, 3X/DAY
     Dates: start: 201403
  2. LYRICA [Suspect]
     Dosage: 75 MG, UNK
  3. LYRICA [Suspect]
     Dosage: 100 MG, UNK
  4. LYRICA [Suspect]
     Dosage: UNK

REACTIONS (1)
  - Weight increased [Unknown]
